FAERS Safety Report 7010035-0 (Version None)
Quarter: 2010Q3

REPORT INFORMATION
  Report Type: 
  Country: None (occurrence: None)
  Receive Date: 20100923
  Receipt Date: 20100917
  Transmission Date: 20110219
  Serious: Yes (Death, Hospitalization)
  Sender: FDA-Public Use
  Company Number: US-GILEAD-2010-0031974

PATIENT
  Sex: Female

DRUGS (14)
  1. LETAIRIS [Suspect]
     Indication: PULMONARY HYPERTENSION
     Route: 048
     Dates: start: 20100817, end: 20100905
  2. REVATIO [Concomitant]
  3. TRACLEER [Concomitant]
     Indication: PULMONARY HYPERTENSION
     Route: 048
     Dates: start: 20100208, end: 20100816
  4. WARFARIN [Concomitant]
  5. ALDACTONE [Concomitant]
  6. FOSAMAX [Concomitant]
  7. PRILOSEC [Concomitant]
  8. METOLAZONE [Concomitant]
  9. LASIX [Concomitant]
  10. PREDNISONE [Concomitant]
  11. SPIRIVA [Concomitant]
  12. SEREVENT [Concomitant]
  13. QVAR 40 [Concomitant]
  14. COMBIVENT [Concomitant]

REACTIONS (3)
  - CARDIAC FAILURE [None]
  - DEATH [None]
  - DEEP VEIN THROMBOSIS [None]
